FAERS Safety Report 25751392 (Version 1)
Quarter: 2025Q3

REPORT INFORMATION
  Report Type: Spontaneous
  Country: US (occurrence: US)
  Receive Date: 20250902
  Receipt Date: 20250902
  Transmission Date: 20251021
  Serious: Yes (Other)
  Sender: CATALYST PHARMA
  Company Number: US-CATALYST PHARMACEUTICALS-US-CATA-25-00641

PATIENT
  Sex: Male

DRUGS (2)
  1. AGAMREE [Suspect]
     Active Substance: VAMOROLONE
     Indication: Duchenne muscular dystrophy
     Route: 065
     Dates: start: 2024, end: 202506
  2. AGAMREE [Suspect]
     Active Substance: VAMOROLONE
     Route: 065
     Dates: start: 202506

REACTIONS (3)
  - Cataract [Unknown]
  - Myopia [Not Recovered/Not Resolved]
  - Astigmatism [Not Recovered/Not Resolved]

NARRATIVE: CASE EVENT DATE: 20240101
